FAERS Safety Report 5082117-4 (Version None)
Quarter: 2006Q3

REPORT INFORMATION
  Report Type: 
  Country: None (occurrence: None)
  Receive Date: 20060811
  Receipt Date: 20060803
  Transmission Date: 20061208
  Serious: Yes (Other)
  Sender: FDA-Public Use
  Company Number: 2006088820

PATIENT
  Age: 42 Year
  Sex: Female
  Weight: 45.3597 kg

DRUGS (1)
  1. UNASYN [Suspect]
     Indication: FEBRILE NEUTROPENIA
     Dosage: 3 GRAM (1.5 GRAM, 2 IN 1 D), INTRAVENOUS
     Route: 042
     Dates: start: 20060629, end: 20060630

REACTIONS (1)
  - BRONCHOSPASM [None]
